FAERS Safety Report 5945875-X (Version None)
Quarter: 2008Q4

REPORT INFORMATION
  Report Type: 
  Country: None (occurrence: None)
  Receive Date: 20081110
  Receipt Date: 20081103
  Transmission Date: 20090506
  Serious: Yes (Hospitalization)
  Sender: FDA-Public Use
  Company Number: ES-JNJFOC-20081101419

PATIENT
  Age: 78 Year
  Sex: Female

DRUGS (3)
  1. HALOPERIDOL [Suspect]
     Indication: PSYCHOTIC DISORDER
     Route: 048
  2. ORFIDAL [Suspect]
     Indication: DRUG USE FOR UNKNOWN INDICATION
     Route: 065
  3. SEROQUEL [Suspect]
     Indication: PSYCHOTIC DISORDER
     Route: 065

REACTIONS (1)
  - SYNCOPE [None]
